FAERS Safety Report 6919090-7 (Version None)
Quarter: 2010Q3

REPORT INFORMATION
  Report Type: 
  Country: None (occurrence: None)
  Receive Date: 20100811
  Receipt Date: 20100802
  Transmission Date: 20110219
  Serious: Yes (Other)
  Sender: FDA-Public Use
  Company Number: US-ASTRAZENECA-2010SE36008

PATIENT
  Age: 93 Year
  Sex: Female
  Weight: 49.9 kg

DRUGS (11)
  1. CRESTOR [Suspect]
     Route: 048
     Dates: end: 20100527
  2. LYRICA [Interacting]
     Indication: FIBROMYALGIA
     Route: 048
     Dates: start: 20081101, end: 20090101
  3. NORVASC [Interacting]
     Indication: CARDIAC DISORDER
     Route: 048
     Dates: start: 19991201, end: 20091201
  4. ZOLOFT [Interacting]
     Indication: DEPRESSION
     Route: 048
     Dates: end: 20100527
  5. PREVACID [Interacting]
     Indication: GASTRIC DISORDER
     Route: 048
     Dates: end: 20100527
  6. PLAVIX [Interacting]
     Indication: CARDIAC DISORDER
     Dates: start: 19990101, end: 20100527
  7. DURAGESIC-100 [Interacting]
     Indication: PAIN
     Dosage: 50
     Route: 062
  8. OXYCODONE HCL [Interacting]
     Indication: PAIN
     Dosage: 110 MG/325 MG
     Route: 048
  9. IMDUR [Concomitant]
     Indication: CARDIAC DISORDER
     Route: 048
  10. NOVOLOG [Concomitant]
     Indication: DIABETES MELLITUS
     Dates: start: 19880101
  11. LANTUS [Concomitant]
     Indication: DIABETES MELLITUS
     Dosage: 16 UNITS DAILY AT BED TIME

REACTIONS (6)
  - BLISTER [None]
  - DRUG INEFFECTIVE [None]
  - DRUG INTERACTION [None]
  - ERYTHEMA [None]
  - PAIN IN EXTREMITY [None]
  - WOUND [None]
